FAERS Safety Report 6914755-5 (Version None)
Quarter: 2010Q3

REPORT INFORMATION
  Report Type: 
  Country: None (occurrence: None)
  Receive Date: 20100804
  Receipt Date: 20100721
  Transmission Date: 20110219
  Serious: Yes (Hospitalization)
  Sender: FDA-Public Use
  Company Number: 002213

PATIENT
  Sex: Male
  Weight: 82.7 kg

DRUGS (10)
  1. LACOSAMIDE [Suspect]
     Indication: COMPLEX PARTIAL SEIZURES
     Dosage: (50 MG ORAL), (100 MG BID ORAL), (150 MG ORAL), (50 MG BID ORAL)
     Route: 048
     Dates: start: 20090914, end: 20090923
  2. LACOSAMIDE [Suspect]
     Indication: COMPLEX PARTIAL SEIZURES
     Dosage: (50 MG ORAL), (100 MG BID ORAL), (150 MG ORAL), (50 MG BID ORAL)
     Route: 048
     Dates: start: 20090923, end: 20090928
  3. LACOSAMIDE [Suspect]
     Indication: COMPLEX PARTIAL SEIZURES
     Dosage: (50 MG ORAL), (100 MG BID ORAL), (150 MG ORAL), (50 MG BID ORAL)
     Route: 048
     Dates: start: 20090929, end: 20091001
  4. LACOSAMIDE [Suspect]
     Indication: COMPLEX PARTIAL SEIZURES
     Dosage: (50 MG ORAL), (100 MG BID ORAL), (150 MG ORAL), (50 MG BID ORAL)
     Route: 048
     Dates: start: 20091001, end: 20091004
  5. LACOSAMIDE [Suspect]
     Indication: COMPLEX PARTIAL SEIZURES
     Dosage: (50 MG ORAL), (100 MG BID ORAL), (150 MG ORAL), (50 MG BID ORAL)
     Route: 048
     Dates: start: 20091005, end: 20091007
  6. LACOSAMIDE [Suspect]
     Indication: COMPLEX PARTIAL SEIZURES
     Dosage: (50 MG ORAL), (100 MG BID ORAL), (150 MG ORAL), (50 MG BID ORAL)
     Route: 048
     Dates: start: 20091007, end: 20091014
  7. PHENOBARBITAL [Concomitant]
  8. CARBATROL [Concomitant]
  9. TOPAMAX [Concomitant]
  10. TRANXENE [Concomitant]

REACTIONS (10)
  - ASTHENIA [None]
  - BALANCE DISORDER [None]
  - CONVULSION [None]
  - DRUG TOXICITY [None]
  - DYSARTHRIA [None]
  - DYSPHAGIA [None]
  - DYSURIA [None]
  - EPISTAXIS [None]
  - FALL [None]
  - SOMNOLENCE [None]
